FAERS Safety Report 9456658 (Version 1)
Quarter: 2013Q3

REPORT INFORMATION
  Report Type: Spontaneous
  Country: IT (occurrence: IT)
  Receive Date: 20130813
  Receipt Date: 20130813
  Transmission Date: 20140515
  Serious: Yes (Hospitalization, Other)
  Sender: FDA-Public Use
  Company Number: IT-WATSON-2013-13717

PATIENT
  Age: 75 Year
  Sex: Male

DRUGS (3)
  1. VANCOMYCIN HYDROCHLORIDE (UNKNOWN) [Suspect]
     Indication: ENDOCARDITIS
     Dosage: 1 G, BID
     Route: 042
  2. GENTAMICIN [Concomitant]
     Indication: ENDOCARDITIS
     Dosage: 1 MG/KG, TID
     Route: 042
  3. RIFAMPICIN [Concomitant]
     Indication: ENDOCARDITIS
     Dosage: 300 MG, BID
     Route: 048

REACTIONS (1)
  - Drug reaction with eosinophilia and systemic symptoms [Recovered/Resolved]
